FAERS Safety Report 23737456 (Version 1)
Quarter: 2024Q2

REPORT INFORMATION
  Report Type: Spontaneous
  Country: CA (occurrence: CA)
  Receive Date: 20240412
  Receipt Date: 20240412
  Transmission Date: 20240716
  Serious: Yes (Other)
  Sender: FDA-Public Use
  Company Number: CA-AstraZeneca-2024A081010

PATIENT
  Age: 62 Year
  Sex: Female
  Weight: 52 kg

DRUGS (1)
  1. TRASTUZUMAB DERUXTECAN [Suspect]
     Active Substance: TRASTUZUMAB DERUXTECAN
     Indication: Breast cancer metastatic
     Dosage: 279 MG, ONCE EVERY 3 WK
     Route: 042

REACTIONS (2)
  - Blood pressure increased [Unknown]
  - Nervousness [Unknown]
